FAERS Safety Report 8298760-5 (Version None)
Quarter: 2012Q2

REPORT INFORMATION
  Report Type: 
  Country: None (occurrence: None)
  Receive Date: 20120419
  Receipt Date: 20120410
  Transmission Date: 20120825
  Serious: Yes (Other)
  Sender: FDA-Public Use
  Company Number: ES-UCBSA-055305

PATIENT
  Sex: Female

DRUGS (4)
  1. LAMOTRGINE [Concomitant]
  2. KEPPRA [Suspect]
     Dosage: TOTAL DAILY DOSE: 2000 MG
     Dates: start: 20110101
  3. VALPROIC ACID [Suspect]
  4. CLONAZEPAM [Concomitant]

REACTIONS (2)
  - UNEVALUABLE EVENT [None]
  - HEPATITIS TOXIC [None]
